FAERS Safety Report 6295762-5 (Version None)
Quarter: 2009Q3

REPORT INFORMATION
  Report Type: 
  Country: None (occurrence: None)
  Receive Date: 20090804
  Receipt Date: 20090727
  Transmission Date: 20100115
  Serious: Yes (Hospitalization)
  Sender: FDA-Public Use
  Company Number: JP-PFIZER INC-2009247732

PATIENT
  Age: 68 Year

DRUGS (5)
  1. SUNITINIB MALATE [Suspect]
     Indication: COLORECTAL CANCER METASTATIC
     Dosage: 37.5 MG, 1X/DAY, EVERY DAY
     Route: 048
     Dates: start: 20090714
  2. OXALIPLATIN [Suspect]
     Indication: COLORECTAL CANCER METASTATIC
     Dosage: 140 MG DAILY, EVERY 2 WEEKS
     Route: 042
     Dates: start: 20090714
  3. 5-FU [Suspect]
     Indication: COLORECTAL CANCER METASTATIC
     Dosage: 3950 MG, EVERY 2 WEEKS, CONTINUOUS INFUSION
     Route: 042
     Dates: start: 20090714
  4. 5-FU [Suspect]
     Dosage: 650 MG, EVERY 2 WEEKS
     Route: 040
     Dates: start: 20090714
  5. CALCIUM LEVOFOLINATE [Suspect]
     Indication: COLORECTAL CANCER METASTATIC
     Dosage: 325 MG DAILY, EVERY 2 WEEKS
     Route: 042
     Dates: start: 20090714

REACTIONS (1)
  - PNEUMONIA BACTERIAL [None]
